FAERS Safety Report 10020788 (Version 1)
Quarter: 2013Q4

REPORT INFORMATION
  Report Type: Spontaneous
  Country: US (occurrence: None)
  Receive Date: 20131203
  Receipt Date: 20131203
  Transmission Date: 20140711
  Serious: Yes (Other)
  Sender: FDA-Public Use
  Company Number: KAD201304-000455

PATIENT
  Age: 54 Year
  Sex: Male
  Weight: 72.56 kg

DRUGS (7)
  1. RIBASPHERE RIBAPAK [Suspect]
     Indication: HEPATITIS C
     Dosage: 600 MG IN THE MORNING AND THE EVENING
     Dates: start: 20121219, end: 20130607
  2. PEGASYS [Suspect]
     Indication: HEPATITIS C
     Dosage: 180 MCG (ONCE A WEEK), SUBCUTANEOUS
     Dates: start: 20121219, end: 20130607
  3. INCIVEK [Suspect]
     Indication: HEPATITIS C
     Dosage: 375 X2 (THRICE DAILY)
     Dates: start: 20121219, end: 20130313
  4. METOCLOPRAMIDE (METOCLOPRAMIDE) [Concomitant]
  5. LEXAPRO (ESCITALOPRAM OXALATE) [Concomitant]
  6. MARINOL (DRONABINOL) [Concomitant]
  7. CLONIDINE (CLONIDINE) [Concomitant]

REACTIONS (8)
  - Haemoglobin decreased [None]
  - Haematocrit decreased [None]
  - Dry skin [None]
  - White blood cell count decreased [None]
  - Arthralgia [None]
  - Arthralgia [None]
  - Neck pain [None]
  - Back pain [None]
